FAERS Safety Report 9867366 (Version 1)
Quarter: 2014Q1

REPORT INFORMATION
  Report Type: Spontaneous
  Country: US (occurrence: None)
  Receive Date: 20140131
  Receipt Date: 20140131
  Transmission Date: 20141002
  Serious: Yes (Death)
  Sender: FDA-Public Use
  Company Number: 2014AP000522

PATIENT
  Age: 51 Year
  Sex: Male

DRUGS (6)
  1. OLANZAPINE ORALLY DISINTEGRATING TABLETS [Suspect]
     Dosage: ; PO
     Route: 048
  2. ZIPRASIDONE HYDROCHLORIDE [Suspect]
     Dosage: ; PO
     Route: 048
  3. HYDROXYZINE [Suspect]
     Dosage: ; PO
     Route: 048
  4. VALPROIC ACID [Suspect]
     Dosage: ; PO
     Route: 048
  5. LISINOPRIL [Suspect]
     Dosage: ; PO
     Route: 048
  6. BENZODIAZEPINE [Suspect]
     Dosage: ; PO
     Route: 048

REACTIONS (1)
  - Completed suicide [None]
